FAERS Safety Report 7440240-0 (Version None)
Quarter: 2011Q2

REPORT INFORMATION
  Report Type: 
  Country: None (occurrence: None)
  Receive Date: 20110427
  Receipt Date: 20100601
  Transmission Date: 20111010
  Serious: No
  Sender: FDA-Public Use
  Company Number: US-PFIZER INC-2010069465

PATIENT
  Sex: Female
  Weight: 86.1 kg

DRUGS (3)
  1. INSULIN [Concomitant]
     Indication: DIABETES MELLITUS
     Dosage: UNK
  2. LIPITOR [Concomitant]
     Indication: BLOOD CHOLESTEROL INCREASED
     Dosage: UNK
  3. AZITHROMYCIN [Suspect]
     Indication: PNEUMONIA
     Dosage: UNK

REACTIONS (1)
  - NASOPHARYNGITIS [None]
